FAERS Safety Report 7523172-9 (Version None)
Quarter: 2011Q2

REPORT INFORMATION
  Report Type: 
  Country: None (occurrence: None)
  Receive Date: 20110603
  Receipt Date: 20110601
  Transmission Date: 20111010
  Serious: Yes (Other)
  Sender: FDA-Public Use
  Company Number: US-PFIZER INC-2011119375

PATIENT
  Age: 79 Year
  Sex: Male

DRUGS (1)
  1. LYRICA [Suspect]
     Indication: NERVE INJURY
     Dosage: UNK
     Route: 048
     Dates: start: 20070701

REACTIONS (6)
  - WOUND [None]
  - SKIN HAEMORRHAGE [None]
  - SKIN DISORDER [None]
  - PAIN [None]
  - SWELLING FACE [None]
  - LOCAL SWELLING [None]
